FAERS Safety Report 20606984 (Version 4)
Quarter: 2023Q4

REPORT INFORMATION
  Report Type: Spontaneous
  Country: GR (occurrence: GR)
  Receive Date: 20220317
  Receipt Date: 20231027
  Transmission Date: 20240109
  Serious: Yes (Other)
  Sender: FDA-Public Use
  Company Number: GR-PFIZER INC-202200281157

PATIENT
  Age: 52 Year
  Sex: Female

DRUGS (2)
  1. EZETIMIBE\SIMVASTATIN [Suspect]
     Active Substance: EZETIMIBE\SIMVASTATIN
     Dosage: UNK
  2. COMIRNATY (TOZINAMERAN) [Suspect]
     Active Substance: TOZINAMERAN
     Indication: COVID-19 immunisation
     Dosage: DOSE 2, SINGLE
     Route: 030
     Dates: start: 20210612, end: 20210612

REACTIONS (39)
  - Hypothermia [Recovered/Resolved]
  - Immobile [Recovering/Resolving]
  - Paralysis [Recovering/Resolving]
  - Necrosis [Unknown]
  - Syncope [Unknown]
  - Movement disorder [Recovering/Resolving]
  - Muscle disorder [Recovering/Resolving]
  - Asthenia [Unknown]
  - Rash [Unknown]
  - Tooth fracture [Unknown]
  - Pain [Unknown]
  - Muscle spasms [Recovering/Resolving]
  - Myopathy [Unknown]
  - Sensitive skin [Unknown]
  - Muscle rigidity [Unknown]
  - Gastrointestinal pain [Recovered/Resolved]
  - Dysphagia [Unknown]
  - Insomnia [Unknown]
  - Nervous system disorder [Unknown]
  - Sensory loss [Recovered/Resolved]
  - Hypersensitivity [Unknown]
  - Dyspnoea [Unknown]
  - Anxiety [Unknown]
  - Acne [Unknown]
  - Vision blurred [Unknown]
  - Brain fog [Unknown]
  - Feeling cold [Unknown]
  - Chillblains [Unknown]
  - Alopecia [Unknown]
  - Musculoskeletal disorder [Recovering/Resolving]
  - Musculoskeletal stiffness [Recovering/Resolving]
  - Injury [Unknown]
  - Haemorrhoids [Unknown]
  - Tendon disorder [Recovering/Resolving]
  - International normalised ratio increased [Unknown]
  - Activated partial thromboplastin time abnormal [Unknown]
  - Loss of personal independence in daily activities [Unknown]
  - Oesophageal disorder [Unknown]
  - Fungal infection [Unknown]

NARRATIVE: CASE EVENT DATE: 20220101
